FAERS Safety Report 23473494 (Version 1)
Quarter: 2024Q1

REPORT INFORMATION
  Report Type: Spontaneous
  Country: US (occurrence: US)
  Receive Date: 20240203
  Receipt Date: 20240203
  Transmission Date: 20240410
  Serious: No
  Sender: FDA-Public Use
  Company Number: US-Ipsen Biopharmaceuticals, Inc.-2024-01442

PATIENT
  Age: 51 Year
  Sex: Female

DRUGS (5)
  1. DYSPORT [Suspect]
     Active Substance: ABOBOTULINUMTOXINA
     Indication: Skin wrinkling
     Dosage: GLABELLA 50 UNITS, FRONTALIS 25 UNITS, 30 UNITS TO EACH CROW^S FEET
     Route: 065
     Dates: start: 20230821, end: 20230821
  2. DYSPORT [Suspect]
     Active Substance: ABOBOTULINUMTOXINA
     Indication: Skin wrinkling
  3. DYSPORT [Suspect]
     Active Substance: ABOBOTULINUMTOXINA
     Indication: Skin wrinkling
  4. DYSPORT [Suspect]
     Active Substance: ABOBOTULINUMTOXINA
     Indication: Off label use
  5. TYLENOL PM [Concomitant]
     Active Substance: ACETAMINOPHEN\DIPHENHYDRAMINE
     Dosage: OCCASIONALLY

REACTIONS (7)
  - Keratopathy [Unknown]
  - Vision blurred [Not Recovered/Not Resolved]
  - Visual impairment [Not Recovered/Not Resolved]
  - Dry eye [Not Recovered/Not Resolved]
  - Eyelid ptosis [Recovered/Resolved]
  - Product preparation error [Unknown]
  - Off label use [Unknown]

NARRATIVE: CASE EVENT DATE: 20230821
